FAERS Safety Report 5919039-X (Version None)
Quarter: 2008Q4

REPORT INFORMATION
  Report Type: 
  Country: None (occurrence: None)
  Receive Date: 20081010
  Receipt Date: 20080926
  Transmission Date: 20090506
  Serious: Yes (Other)
  Sender: FDA-Public Use
  Company Number: 2008BI021958

PATIENT
  Sex: Male

DRUGS (3)
  1. TYSABRI [Suspect]
     Indication: RELAPSING-REMITTING MULTIPLE SCLEROSIS
     Dosage: 300 MG;QM:IV
     Route: 042
     Dates: start: 20071015, end: 20080730
  2. BETAFERON [Concomitant]
  3. STEROIDS [Concomitant]

REACTIONS (5)
  - DISEASE RECURRENCE [None]
  - EAR INFECTION [None]
  - EYE INFECTION TOXOPLASMAL [None]
  - SENSORY DISTURBANCE [None]
  - UVEITIS [None]
